FAERS Safety Report 9219220 (Version 3)
Quarter: 2013Q4

REPORT INFORMATION
  Report Type: Report from Study
  Country: US (occurrence: US)
  Receive Date: 20130409
  Receipt Date: 20131227
  Transmission Date: 20140711
  Serious: Yes (Death, Hospitalization, Other)
  Sender: FDA-Public Use
  Company Number: US-BAYER-2013-011374

PATIENT
  Age: 69 Year
  Sex: Male

DRUGS (7)
  1. NEXAVAR [Suspect]
     Indication: HEPATIC CANCER
     Dosage: 400 MG, BID
     Route: 048
     Dates: start: 20130108
  2. NEXAVAR [Suspect]
     Indication: HEPATIC CANCER
     Dosage: 400 MG, BID
     Route: 048
     Dates: start: 20130114
  3. NEXAVAR [Suspect]
     Indication: HEPATIC CANCER
     Dosage: 400 MG, BID
     Route: 048
     Dates: start: 20130209
  4. NEXAVAR [Suspect]
     Indication: HEPATIC CANCER
     Dosage: 200 MG, BID
     Route: 048
  5. NEXAVAR [Suspect]
     Indication: HEPATIC CANCER
     Dosage: 400 MG, BID
     Route: 048
  6. NEXAVAR [Suspect]
     Indication: HEPATIC CANCER
     Dosage: 3X200MG
     Route: 048
  7. NEXAVAR [Suspect]
     Indication: HEPATIC CANCER
     Dosage: 200 MG / DAY
     Route: 048

REACTIONS (9)
  - Atrial fibrillation [None]
  - Haemoglobin decreased [None]
  - Dehydration [None]
  - Decreased appetite [None]
  - Rash [None]
  - Fatigue [None]
  - Wound [None]
  - Diarrhoea [None]
  - Death [Fatal]
